FAERS Safety Report 26101666 (Version 2)
Quarter: 2025Q4

REPORT INFORMATION
  Report Type: Spontaneous
  Country: JP (occurrence: JP)
  Receive Date: 20251128
  Receipt Date: 20251224
  Transmission Date: 20260117
  Serious: Yes (Other)
  Sender: AMGEN
  Company Number: JP-AMGEN-JPNSP2025232365

PATIENT
  Age: 77 Year
  Sex: Male

DRUGS (3)
  1. IMDELLTRA [Suspect]
     Active Substance: TARLATAMAB-DLLE
     Indication: Small cell lung cancer extensive stage
     Dosage: 1 MILLIGRAM, INJECTION, DAY 1
     Route: 040
     Dates: start: 20251001
  2. IMDELLTRA [Suspect]
     Active Substance: TARLATAMAB-DLLE
     Dosage: 10 MILLIGRAM, INJECTION, DAY 14
     Route: 040
  3. IMDELLTRA [Suspect]
     Active Substance: TARLATAMAB-DLLE
     Dosage: 10 MILLIGRAM, INJECTION, DAY 28
     Route: 040

REACTIONS (4)
  - Tumour pseudoprogression [Recovering/Resolving]
  - Pneumonia [Unknown]
  - Cytokine release syndrome [Unknown]
  - Off label use [Unknown]
